FAERS Safety Report 8029513-0 (Version None)
Quarter: 2012Q1

REPORT INFORMATION
  Report Type: 
  Country: None (occurrence: None)
  Receive Date: 20120109
  Receipt Date: 20111230
  Transmission Date: 20120608
  Serious: Yes (Other)
  Sender: FDA-Public Use
  Company Number: US-BIOGENIDEC-2011BI049135

PATIENT
  Age: 51 Year
  Sex: Female

DRUGS (3)
  1. AVONEX [Suspect]
     Indication: MULTIPLE SCLEROSIS
     Route: 030
     Dates: start: 20110301, end: 20111201
  2. AVONEX [Suspect]
     Route: 030
  3. AVONEX [Suspect]
     Route: 030
     Dates: start: 20061001, end: 20080501

REACTIONS (1)
  - HEPATIC CIRRHOSIS [None]
